FAERS Safety Report 10423438 (Version 1)
Quarter: 2014Q3

REPORT INFORMATION
  Report Type: Spontaneous
  Country: US (occurrence: None)
  Receive Date: 20140722
  Receipt Date: 20140722
  Transmission Date: 20150326
  Serious: No
  Sender: FDA-Public Use
  Company Number: 163-10004-14062979

PATIENT
  Age: 42 Year
  Sex: Male

DRUGS (3)
  1. OTEZLA [Suspect]
     Active Substance: APREMILAST
     Indication: ANKYLOSING SPONDYLITIS
     Route: 048
     Dates: start: 20140602, end: 20140610
  2. OTEZLA [Suspect]
     Active Substance: APREMILAST
     Indication: PSORIATIC ARTHROPATHY
     Route: 048
     Dates: start: 20140602, end: 20140610
  3. VIMOVO(VIMOVO)(UNKNOWN) [Concomitant]

REACTIONS (3)
  - Depression [None]
  - Nasopharyngitis [None]
  - Headache [None]

NARRATIVE: CASE EVENT DATE: 20140605
